FAERS Safety Report 6553754-2 (Version None)
Quarter: 2010Q1

REPORT INFORMATION
  Report Type: 
  Country: None (occurrence: None)
  Receive Date: 20100127
  Receipt Date: 20100115
  Transmission Date: 20100710
  Serious: Yes (Other)
  Sender: FDA-Public Use
  Company Number: PHHY2010FI03667

PATIENT

DRUGS (1)
  1. LEPONEX [Suspect]

REACTIONS (4)
  - C-REACTIVE PROTEIN INCREASED [None]
  - INFECTION [None]
  - NEUTROPHIL COUNT INCREASED [None]
  - PYREXIA [None]
